FAERS Safety Report 4631252-0 (Version None)
Quarter: 2005Q2

REPORT INFORMATION
  Report Type: 
  Country: None (occurrence: None)
  Receive Date: 20050406
  Receipt Date: 20050328
  Transmission Date: 20051028
  Serious: Yes (Hospitalization, Other)
  Sender: FDA-Public Use
  Company Number: US-2005-004340

PATIENT
  Age: 23 Year
  Sex: Female

DRUGS (2)
  1. MIRENA [Suspect]
     Indication: CONTRACEPTION
     Dosage: 20 UG/DAY, CONT, INTRA-UTERINE
     Route: 015
     Dates: start: 20020723, end: 20030201
  2. COUMADIN [Concomitant]

REACTIONS (6)
  - IUCD COMPLICATION [None]
  - LOSS OF CONSCIOUSNESS [None]
  - MEDICATION ERROR [None]
  - POST PROCEDURAL HAEMORRHAGE [None]
  - SIMPLE PARTIAL SEIZURES [None]
  - UTERINE PERFORATION [None]
